FAERS Safety Report 9838894 (Version 3)
Quarter: 2014Q1

REPORT INFORMATION
  Report Type: Report from Study
  Country: AU (occurrence: AU)
  Receive Date: 20140123
  Receipt Date: 20140304
  Transmission Date: 20141002
  Serious: Yes (Hospitalization, Other)
  Sender: FDA-Public Use
  Company Number: AU-ASTRAZENECA-2013SE54879

PATIENT
  Age: 89 Year
  Sex: Male

DRUGS (4)
  1. ZOLADEX [Suspect]
     Route: 058
     Dates: start: 20130306
  2. COVERSYL [Concomitant]
  3. DIURETICS [Concomitant]
  4. ANTIBIOTICS [Concomitant]

REACTIONS (11)
  - Lymphoma [Unknown]
  - Pleural effusion [Unknown]
  - Hot flush [Unknown]
  - Gait disturbance [Not Recovered/Not Resolved]
  - Musculoskeletal stiffness [Not Recovered/Not Resolved]
  - Fluid retention [Unknown]
  - Cellulitis [Unknown]
  - Decreased appetite [Unknown]
  - Weight decreased [Unknown]
  - Hyperhidrosis [Unknown]
  - General physical health deterioration [Unknown]
